FAERS Safety Report 11187518 (Version 1)
Quarter: 2015Q2

REPORT INFORMATION
  Report Type: Spontaneous
  Country: US (occurrence: US)
  Receive Date: 20150615
  Receipt Date: 20150615
  Transmission Date: 20150821
  Serious: Yes (Other)
  Sender: FDA-Public Use
  Company Number: US-JNJFOC-20150505010

PATIENT
  Sex: Male
  Weight: 88 kg

DRUGS (2)
  1. XARELTO [Suspect]
     Active Substance: RIVAROXABAN
     Indication: DEEP VEIN THROMBOSIS
     Route: 048
     Dates: start: 20150206, end: 2015
  2. XARELTO [Suspect]
     Active Substance: RIVAROXABAN
     Indication: HYPERCOAGULATION
     Route: 048
     Dates: start: 20150206, end: 2015

REACTIONS (7)
  - Adverse drug reaction [Unknown]
  - Arthralgia [Unknown]
  - Haematochezia [Unknown]
  - Epistaxis [Unknown]
  - Mouth ulceration [Recovered/Resolved]
  - Mouth haemorrhage [Unknown]
  - Polyarthritis [Recovered/Resolved]

NARRATIVE: CASE EVENT DATE: 2015
